FAERS Safety Report 8764491 (Version 1)
Quarter: 2012Q4

REPORT INFORMATION
  Report Type: 
  Country: US (occurrence: US)
  Receive Date: 20120831
  Receipt Date: 20120831
  Transmission Date: 20130627
  Serious: No
  Sender: FDA-Public Use
  Company Number: US-ASTRAZENECA-2012SE60007

PATIENT
  Age: 45 Year
  Sex: Female

DRUGS (1)
  1. VIMOVO [Suspect]
     Dosage: 500/20 MG TWO TIMES DAILY
     Route: 048

REACTIONS (1)
  - Intervertebral disc degeneration [Unknown]
